FAERS Safety Report 7807002-3 (Version None)
Quarter: 2011Q4

REPORT INFORMATION
  Report Type: 
  Country: None (occurrence: None)
  Receive Date: 20111011
  Receipt Date: 20110930
  Transmission Date: 20120403
  Serious: Yes (Other)
  Sender: FDA-Public Use
  Company Number: JP-ROCHE-796933

PATIENT
  Sex: Female

DRUGS (4)
  1. XELODA [Suspect]
     Dosage: DOSE RESUMED TO 70% OF ORIGINAL DOSE
     Route: 048
  2. XELODA [Suspect]
     Indication: BREAST CANCER METASTATIC
     Dosage: NOTE: DOSAGE IS UNCERTAIN. DRUG: XELODA 300(CAPECITABINE)
     Route: 048
  3. TYKERB [Concomitant]
     Dosage: NOTE: DOSAGE IS UNCERTAIN. DRUG: TYKERB(LAPATINIB TOSILATE HYDRATE)
     Route: 048
  4. TYKERB [Concomitant]
     Dosage: DOSE RESUMED TO 70% OF ORIGINAL DOSE
     Route: 048

REACTIONS (1)
  - PERINEAL ULCERATION [None]
